FAERS Safety Report 22029595 (Version 2)
Quarter: 2023Q1

REPORT INFORMATION
  Report Type: Report from Study
  Country: CA (occurrence: None)
  Receive Date: 20230223
  Receipt Date: 20230303
  Transmission Date: 20230417
  Serious: Yes (Death, Hospitalization)
  Sender: FDA-Public Use
  Company Number: CA-Eisai Medical Research-EC-2023-134755

PATIENT
  Age: 63 Year
  Sex: Female

DRUGS (2)
  1. LENVIMA [Suspect]
     Active Substance: LENVATINIB
     Indication: Endometrial cancer
     Route: 048
     Dates: start: 20230210, end: 202302
  2. PEMBROLIZUMAB [Suspect]
     Active Substance: PEMBROLIZUMAB
     Indication: Endometrial cancer
     Route: 042
     Dates: start: 20230210, end: 202302

REACTIONS (3)
  - Seizure [Unknown]
  - Death [Fatal]
  - Asthenia [Unknown]

NARRATIVE: CASE EVENT DATE: 20230201
